FAERS Safety Report 26137508 (Version 1)
Quarter: 2025Q4

REPORT INFORMATION
  Report Type: Spontaneous
  Country: US (occurrence: US)
  Receive Date: 20251209
  Receipt Date: 20251209
  Transmission Date: 20260118
  Serious: No
  Sender: MERCK SHARP & DOHME LLC
  Company Number: US-009507513-2351213

PATIENT
  Sex: Female

DRUGS (32)
  1. WINREVAIR [Suspect]
     Active Substance: SOTATERCEPT-CSRK
  2. WINREVAIR [Suspect]
     Active Substance: SOTATERCEPT-CSRK
  3. WINREVAIR [Suspect]
     Active Substance: SOTATERCEPT-CSRK
  4. WINREVAIR [Suspect]
     Active Substance: SOTATERCEPT-CSRK
  5. Milk of magnesia (Magnesium hydroxide) [Concomitant]
  6. ALPRAZOLAM [Concomitant]
     Active Substance: ALPRAZOLAM
  7. VITAMIN C [Concomitant]
     Active Substance: ASCORBIC ACID
  8. LEVOTHYROXINE SODIUM [Concomitant]
     Active Substance: LEVOTHYROXINE SODIUM
  9. POTASSIUM CHLORIDE [Concomitant]
     Active Substance: POTASSIUM CHLORIDE
  10. OPSUMIT [Concomitant]
     Active Substance: MACITENTAN
  11. TRELEGY ELLIPTA [Concomitant]
     Active Substance: FLUTICASONE FUROATE\UMECLIDINIUM BROMIDE\VILANTEROL TRIFENATATE
  12. PFIZER-BIONTECH COVID-19 VACCINE [Concomitant]
     Active Substance: TOZINAMERAN
  13. KETAMINE HYDROCHLORIDE [Concomitant]
     Active Substance: KETAMINE HYDROCHLORIDE
  14. LECITHIN [Concomitant]
     Active Substance: LECITHIN
  15. VITAMIN E [Concomitant]
     Active Substance: .ALPHA.-TOCOPHEROL
  16. EPIPEN [Concomitant]
     Active Substance: EPINEPHRINE
  17. PROAIR HFA [Concomitant]
     Active Substance: ALBUTEROL SULFATE
  18. CLONIDINE [Concomitant]
     Active Substance: CLONIDINE
  19. KETOPROFEN [Concomitant]
     Active Substance: KETOPROFEN
  20. REVATIO [Concomitant]
     Active Substance: SILDENAFIL CITRATE
  21. PEPCID COMPLETE [Concomitant]
     Active Substance: CALCIUM CARBONATE\FAMOTIDINE\MAGNESIUM HYDROXIDE
  22. PREDNISONE [Concomitant]
     Active Substance: PREDNISONE
  23. OXYGEN [Concomitant]
     Active Substance: OXYGEN
  24. SPIRONOLACTONE [Concomitant]
     Active Substance: SPIRONOLACTONE
  25. ASPIRIN [Concomitant]
     Active Substance: ASPIRIN
  26. LIDOCAINE HYDROCHLORIDE [Concomitant]
     Active Substance: LIDOCAINE HYDROCHLORIDE
  27. FUROSEMIDE [Concomitant]
     Active Substance: FUROSEMIDE
  28. AMITRIPTYLINE HYDROCHLORIDE [Concomitant]
     Active Substance: AMITRIPTYLINE HYDROCHLORIDE
  29. GABAPENTIN [Concomitant]
     Active Substance: GABAPENTIN
  30. POLOXAMER [Concomitant]
     Active Substance: POLOXAMER
  31. VITAMIN D3 [Concomitant]
     Active Substance: CHOLECALCIFEROL
  32. REMODULIN [Suspect]
     Active Substance: TREPROSTINIL
     Indication: Pulmonary arterial hypertension
     Dosage: CONCENTRATION 10.0 MG/ML
     Route: 058
     Dates: start: 20241014

REACTIONS (1)
  - Memory impairment [Recovered/Resolved]
